FAERS Safety Report 9108666 (Version 5)
Quarter: 2013Q2

REPORT INFORMATION
  Report Type: Spontaneous
  Country: US (occurrence: US)
  Receive Date: 20130222
  Receipt Date: 20130604
  Transmission Date: 20140414
  Serious: No
  Sender: FDA-Public Use
  Company Number: US-PFIZER INC-2013065235

PATIENT
  Age: 89 Year
  Sex: Female

DRUGS (2)
  1. CALAN SR [Suspect]
     Dosage: 240 MG, 1X/DAY
     Dates: start: 19930401
  2. CADUET [Suspect]
     Dosage: UNK

REACTIONS (2)
  - Palpitations [Unknown]
  - Hearing impaired [Unknown]
